FAERS Safety Report 9210318 (Version 1)
Quarter: 2013Q2

REPORT INFORMATION
  Report Type: Spontaneous
  Country: US (occurrence: US)
  Receive Date: 20130404
  Receipt Date: 20130404
  Transmission Date: 20140414
  Serious: Yes (Other)
  Sender: FDA-Public Use
  Company Number: US-ELI_LILLY_AND_COMPANY-US201303009323

PATIENT
  Sex: Male

DRUGS (5)
  1. AXIRON [Suspect]
     Dosage: 60 MG, UNK
     Dates: start: 201207, end: 20130322
  2. ADVAIR [Concomitant]
     Indication: ASTHMA
     Dosage: UNK
  3. SPIRIVA [Concomitant]
     Indication: ASTHMA
     Dosage: UNK
  4. ZOCOR [Concomitant]
     Dosage: UNK
  5. RISPERDAL [Concomitant]

REACTIONS (1)
  - Blindness [Recovering/Resolving]
